FAERS Safety Report 24711551 (Version 1)
Quarter: 2024Q4

REPORT INFORMATION
  Report Type: Spontaneous
  Country: US (occurrence: US)
  Receive Date: 20241209
  Receipt Date: 20241209
  Transmission Date: 20250115
  Serious: No
  Sender: NOBELPHARMA AMERICA, LLC
  Company Number: US-Nobelpharma America, LLC-NPA-2024-02063

PATIENT
  Age: 7 Year
  Sex: Male
  Weight: 26.6 kg

DRUGS (1)
  1. HYFTOR [Suspect]
     Active Substance: SIROLIMUS
     Indication: Birth mark
     Route: 003
     Dates: start: 20240621, end: 20241101

REACTIONS (3)
  - Condition aggravated [Recovered/Resolved]
  - Product use in unapproved indication [Unknown]
  - Erythema [Recovered/Resolved]

NARRATIVE: CASE EVENT DATE: 20241101
